FAERS Safety Report 10606295 (Version 1)
Quarter: 2014Q4

REPORT INFORMATION
  Report Type: Spontaneous
  Country: FR (occurrence: None)
  Receive Date: 20141121
  Receipt Date: 20141121
  Transmission Date: 20150529
  Serious: Yes (Hospitalization)
  Sender: FDA-Public Use
  Company Number: TPU2014-00386

PATIENT
  Age: 87 Year
  Sex: Male

DRUGS (16)
  1. OXYCODONE (OXYCODONE) [Suspect]
     Active Substance: OXYCODONE
     Indication: PRODUCT USED FOR UNKNOWN INDICATION
     Dosage: 1 IN 1 D
     Route: 048
     Dates: start: 20140916, end: 20140923
  2. COUMADIN [Concomitant]
     Active Substance: WARFARIN SODIUM
  3. BISOPROLOL [Concomitant]
     Active Substance: BISOPROLOL
  4. PERINDOPRIL [Concomitant]
     Active Substance: PERINDOPRIL
  5. GENTAMICINE (GENTAMICIN SULFATE) [Concomitant]
  6. DEPAKENE [Concomitant]
     Active Substance: VALPROIC ACID
  7. DOLIPRANE [Concomitant]
     Active Substance: ACETAMINOPHEN
  8. VERSATIS [Suspect]
     Active Substance: LIDOCAINE
     Indication: PRODUCT USED FOR UNKNOWN INDICATION
     Dosage: TOPICAL
     Route: 061
     Dates: start: 20140917, end: 20140922
  9. RULID (ROXITHROMYCIN) [Concomitant]
  10. PANTOPRAZOLE [Concomitant]
     Active Substance: PANTOPRAZOLE SODIUM
  11. ALLOPURINOL (ALLOPURINOL) [Suspect]
     Active Substance: ALLOPURINOL
     Indication: PRODUCT USED FOR UNKNOWN INDICATION
     Dosage: 1 IN 1 D
     Route: 048
     Dates: end: 20140922
  12. DESLORATADINE. [Concomitant]
     Active Substance: DESLORATADINE
  13. DIPROSONE (BETAMETHASONE DIPROPIONATE) [Concomitant]
  14. CEFTRIAXONE (CEFTRIAXONE) [Suspect]
     Active Substance: CEFTRIAXONE
     Dosage: 1 IN 1 D
     Route: 058
     Dates: start: 20140916, end: 20140923
  15. TAVANIC [Suspect]
     Active Substance: LEVOFLOXACIN
     Indication: PRODUCT USED FOR UNKNOWN INDICATION
     Dosage: 3 IN 1 D
     Route: 048
     Dates: start: 20140922, end: 20140923
  16. FUROSEMIDE. [Concomitant]
     Active Substance: FUROSEMIDE

REACTIONS (6)
  - Rash maculo-papular [None]
  - Eosinophilia [None]
  - Pyrexia [None]
  - Rash pruritic [None]
  - Acute kidney injury [None]
  - Toxic skin eruption [None]

NARRATIVE: CASE EVENT DATE: 20140923
